FAERS Safety Report 9528308 (Version 1)
Quarter: 2013Q3

REPORT INFORMATION
  Report Type: Spontaneous
  Country: DE (occurrence: DE)
  Receive Date: 20130917
  Receipt Date: 20130917
  Transmission Date: 20140515
  Serious: Yes (Other)
  Sender: FDA-Public Use
  Company Number: DE-TEVA-430512GER

PATIENT
  Sex: Male
  Weight: 80 kg

DRUGS (3)
  1. ATORVASTATIN [Suspect]
     Route: 048
     Dates: start: 201203
  2. SIMVASTATIN [Suspect]
     Route: 048
     Dates: start: 201210
  3. FLUVASTATIN [Suspect]
     Route: 048
     Dates: start: 201302

REACTIONS (2)
  - Abasia [Recovered/Resolved]
  - Myopathy [Recovered/Resolved]
